FAERS Safety Report 13463813 (Version 1)
Quarter: 2017Q2

REPORT INFORMATION
  Report Type: Spontaneous
  Country: US (occurrence: US)
  Receive Date: 20170420
  Receipt Date: 20170420
  Transmission Date: 20170830
  Serious: Yes (Hospitalization, Other)
  Sender: FDA-Public Use
  Company Number: US-ROCHE-663808

PATIENT
  Age: 17 Year
  Sex: Male
  Weight: 86.2 kg

DRUGS (5)
  1. ACCUTANE [Suspect]
     Active Substance: ISOTRETINOIN
     Route: 065
     Dates: start: 20020325, end: 20020830
  2. TETRACYCLINE [Concomitant]
     Active Substance: TETRACYCLINE
     Indication: ACNE
     Route: 065
  3. ERYTROMYCIN [Concomitant]
     Active Substance: ERYTHROMYCIN
     Indication: ACNE
     Route: 065
  4. ACCUTANE [Suspect]
     Active Substance: ISOTRETINOIN
     Indication: ACNE
     Route: 065
     Dates: start: 20020225, end: 200203
  5. MINOCYCLINE [Concomitant]
     Active Substance: MINOCYCLINE\MINOCYCLINE HYDROCHLORIDE
     Indication: ACNE
     Route: 065

REACTIONS (5)
  - Lip dry [Recovered/Resolved]
  - Post inflammatory pigmentation change [Unknown]
  - Depression [Unknown]
  - Inflammatory bowel disease [Unknown]
  - Colitis ulcerative [Unknown]

NARRATIVE: CASE EVENT DATE: 20020325
